FAERS Safety Report 20127535 (Version 1)
Quarter: 2021Q4

REPORT INFORMATION
  Report Type: Spontaneous
  Country: SI (occurrence: None)
  Receive Date: 20211129
  Receipt Date: 20211129
  Transmission Date: 20220303
  Serious: Yes (Disabling)
  Sender: FDA-Public Use
  Company Number: None

PATIENT
  Age: 35 Year
  Sex: Female
  Weight: 68 kg

DRUGS (1)
  1. BETAMETHASONE DIPROPIONATE [Suspect]
     Active Substance: BETAMETHASONE DIPROPIONATE
     Indication: Dermatitis atopic

REACTIONS (20)
  - Drug ineffective [None]
  - Rash [None]
  - Pruritus [None]
  - Burning sensation [None]
  - Pain [None]
  - Flushing [None]
  - Skin exfoliation [None]
  - Inflammation [None]
  - Feeling of body temperature change [None]
  - Hyperaesthesia [None]
  - Neuralgia [None]
  - Oedema [None]
  - Dry eye [None]
  - Eye irritation [None]
  - Skin atrophy [None]
  - Alopecia [None]
  - Insomnia [None]
  - Affect lability [None]
  - Depression [None]
  - Anxiety [None]

NARRATIVE: CASE EVENT DATE: 20200203
